FAERS Safety Report 25585136 (Version 1)
Quarter: 2025Q3

REPORT INFORMATION
  Report Type: Spontaneous
  Country: US (occurrence: None)
  Receive Date: 20250718
  Receipt Date: 20250718
  Transmission Date: 20251021
  Serious: No
  Sender: FDA-CTU
  Company Number: None

PATIENT
  Age: 31 Year
  Sex: Male
  Weight: 82 kg

DRUGS (2)
  1. CETIRIZINE [Suspect]
     Active Substance: CETIRIZINE HYDROCHLORIDE
     Dosage: FREQUENCY : DAILY;?
  2. ZYRTEC [Concomitant]
     Active Substance: CETIRIZINE HYDROCHLORIDE
     Dates: start: 20200101, end: 20240106

REACTIONS (4)
  - Depression [None]
  - Drug ineffective [None]
  - Therapy change [None]
  - Withdrawal syndrome [None]

NARRATIVE: CASE EVENT DATE: 20240106
